FAERS Safety Report 6521340-6 (Version None)
Quarter: 2009Q4

REPORT INFORMATION
  Report Type: 
  Country: None (occurrence: None)
  Receive Date: 20091230
  Receipt Date: 20091223
  Transmission Date: 20100525
  Serious: Yes (Other)
  Sender: FDA-Public Use
  Company Number: GB-JNJFOC-20091206590

PATIENT
  Sex: Male

DRUGS (4)
  1. DARUNAVIR [Suspect]
     Indication: HIV INFECTION
     Route: 048
     Dates: start: 20080201
  2. RANITIDINE [Suspect]
     Indication: DRUG USE FOR UNKNOWN INDICATION
  3. RITONAVIR [Concomitant]
     Indication: HIV INFECTION
     Route: 048
     Dates: start: 20080201
  4. OMEPRAZOLE [Concomitant]
     Indication: DRUG USE FOR UNKNOWN INDICATION

REACTIONS (2)
  - CONTUSION [None]
  - THROMBOCYTOPENIA [None]
